FAERS Safety Report 15746609 (Version 1)
Quarter: 2018Q4

REPORT INFORMATION
  Report Type: Spontaneous
  Country: CA (occurrence: CA)
  Receive Date: 20181220
  Receipt Date: 20181220
  Transmission Date: 20190205
  Serious: Yes (Other)
  Sender: FDA-Public Use
  Company Number: CA-BAYER-2018-240068

PATIENT
  Age: 36 Year
  Sex: Female
  Weight: 68.03 kg

DRUGS (2)
  1. MIRENA [Suspect]
     Active Substance: LEVONORGESTREL
     Indication: CONTRACEPTION
     Dosage: 20 MCG/24HR, CONT
     Route: 015
     Dates: start: 20180420
  2. MIRENA [Suspect]
     Active Substance: LEVONORGESTREL
     Indication: CONTRACEPTION
     Dosage: UNK

REACTIONS (7)
  - Fatigue [Unknown]
  - Migraine [Unknown]
  - Loss of libido [Unknown]
  - Vaginal haemorrhage [Unknown]
  - Abdominal pain [Unknown]
  - Depression [Unknown]
  - Mood swings [Unknown]
